FAERS Safety Report 5398790-7 (Version None)
Quarter: 2007Q3

REPORT INFORMATION
  Report Type: 
  Country: None (occurrence: None)
  Receive Date: 20070724
  Receipt Date: 20070712
  Transmission Date: 20080115
  Serious: Yes (Hospitalization)
  Sender: FDA-Public Use
  Company Number: 17015

PATIENT
  Age: 77 Year
  Sex: Female
  Weight: 84.4 kg

DRUGS (5)
  1. PACLITAXEL [Suspect]
     Indication: OVARIAN CANCER
     Dosage: 300 MG, DAILY
     Dates: start: 20070711, end: 20070711
  2. FORTECORTIN [Concomitant]
  3. NAVOBAN [Concomitant]
  4. DIBONDRIN [Concomitant]
  5. ULSAL [Concomitant]

REACTIONS (7)
  - BACK PAIN [None]
  - BLOOD PRESSURE SYSTOLIC INCREASED [None]
  - CHEST DISCOMFORT [None]
  - DRUG HYPERSENSITIVITY [None]
  - DYSPNOEA [None]
  - FLUSHING [None]
  - NAUSEA [None]
